FAERS Safety Report 24104893 (Version 2)
Quarter: 2024Q3

REPORT INFORMATION
  Report Type: Spontaneous
  Country: US (occurrence: US)
  Receive Date: 20240717
  Receipt Date: 20240801
  Transmission Date: 20241016
  Serious: Yes (Hospitalization, Other)
  Sender: BRISTOL MYERS SQUIBB
  Company Number: US-BRISTOL-MYERS SQUIBB COMPANY-2024-112424

PATIENT
  Age: 61 Year
  Sex: Male
  Weight: 77.11 kg

DRUGS (11)
  1. ELIQUIS [Suspect]
     Active Substance: APIXABAN
     Indication: Deep vein thrombosis
     Route: 048
     Dates: start: 20190119, end: 202202
  2. ELIQUIS [Suspect]
     Active Substance: APIXABAN
     Route: 048
  3. COUMADIN [Concomitant]
     Active Substance: WARFARIN SODIUM
     Dates: start: 2022
  4. ASPIRIN [Concomitant]
     Active Substance: ASPIRIN
  5. CIPROFLOXACIN [Concomitant]
     Active Substance: CIPROFLOXACIN
  6. CARVEDILOL [Concomitant]
     Active Substance: CARVEDILOL
  7. ALBUTEROL\IPRATROPIUM [Concomitant]
     Active Substance: ALBUTEROL\IPRATROPIUM
     Dosage: ONE VIAL A DAY, ONE VIAL EVERY 2 DAYS
  8. SPIRIVA [Concomitant]
     Active Substance: TIOTROPIUM BROMIDE MONOHYDRATE
     Indication: Oropharyngeal discomfort
  9. SYMBICORT [Concomitant]
     Active Substance: BUDESONIDE\FORMOTEROL FUMARATE DIHYDRATE
     Indication: Oropharyngeal discomfort
  10. ALBUTEROL SULFATE [Concomitant]
     Active Substance: ALBUTEROL SULFATE
     Indication: Oropharyngeal discomfort
  11. WARFARIN [Concomitant]
     Active Substance: WARFARIN
     Dates: start: 2022

REACTIONS (14)
  - Overdose [Unknown]
  - Speech disorder [Unknown]
  - Oral disorder [Unknown]
  - Haemorrhage [Recovered/Resolved]
  - Gastrointestinal disorder [Unknown]
  - Renal vascular thrombosis [Unknown]
  - Peripheral artery occlusion [Unknown]
  - Activated partial thromboplastin time abnormal [Unknown]
  - Mouth swelling [Unknown]
  - Treatment noncompliance [Unknown]
  - Vascular occlusion [Unknown]
  - Body height decreased [Unknown]
  - Muscle spasms [Unknown]
  - Off label use [Unknown]
